FAERS Safety Report 6923165-6 (Version None)
Quarter: 2010Q3

REPORT INFORMATION
  Report Type: 
  Country: None (occurrence: None)
  Receive Date: 20100813
  Receipt Date: 20100805
  Transmission Date: 20110219
  Serious: Yes (Hospitalization, Other)
  Sender: FDA-Public Use
  Company Number: JP-ROCHE-683590

PATIENT
  Sex: Male
  Weight: 40 kg

DRUGS (8)
  1. XELODA [Suspect]
     Indication: COLON CANCER METASTATIC
     Dosage: DRUG NAME REPORTED AS XELODA 300(CAPECITABINE)
     Route: 048
     Dates: start: 20091203, end: 20100113
  2. XELODA [Suspect]
     Route: 048
     Dates: start: 20100114, end: 20100127
  3. DIFLUCAN [Concomitant]
     Indication: EYE INFECTION FUNGAL
     Route: 048
     Dates: start: 20090629
  4. ELPLAT [Concomitant]
     Route: 041
     Dates: start: 20091203, end: 20091224
  5. DANTRIUM [Concomitant]
     Route: 048
  6. MYONAL [Concomitant]
     Route: 048
  7. KYTRIL [Concomitant]
     Dates: start: 20091203, end: 20091224
  8. DEXAMETHASONE SODIUM PHOSPHATE [Concomitant]
     Dosage: DRUG NAME REPORTED AS: ORGADRONE
     Route: 065
     Dates: start: 20091203, end: 20091224

REACTIONS (12)
  - BACK PAIN [None]
  - CHEST PAIN [None]
  - COMPRESSION FRACTURE [None]
  - DECREASED APPETITE [None]
  - DIARRHOEA [None]
  - ENZYME INHIBITION [None]
  - MALAISE [None]
  - MYALGIA [None]
  - NAUSEA [None]
  - PALMAR-PLANTAR ERYTHRODYSAESTHESIA SYNDROME [None]
  - PYREXIA [None]
  - STOMATITIS [None]
